FAERS Safety Report 11211805 (Version 1)
Quarter: 2015Q2

REPORT INFORMATION
  Report Type: Spontaneous
  Country: US (occurrence: None)
  Receive Date: 20150619
  Receipt Date: 20150619
  Transmission Date: 20150821
  Serious: Yes (Hospitalization, Disabling)
  Sender: FDA-Public Use
  Company Number: None

PATIENT
  Age: 83 Year
  Sex: Male
  Weight: 78 kg

DRUGS (21)
  1. LEXAPRO [Concomitant]
     Active Substance: ESCITALOPRAM OXALATE
  2. METFORMIN [Concomitant]
     Active Substance: METFORMIN HYDROCHLORIDE
  3. AMLODIPINE [Concomitant]
     Active Substance: AMLODIPINE BESYLATE
  4. TURMERIC [Concomitant]
     Active Substance: TURMERIC
     Route: 048
  5. ALLOPURINOL. [Concomitant]
     Active Substance: ALLOPURINOL
  6. ASCORBIC ACID. [Concomitant]
     Active Substance: ASCORBIC ACID
  7. BLIBERRY [Concomitant]
  8. GYMNEMA [Concomitant]
  9. KOREAN GINSING [Concomitant]
  10. AZOFT [Concomitant]
  11. VITAMIN B12 [Concomitant]
     Active Substance: CYANOCOBALAMIN
  12. ALLEGRA [Concomitant]
     Active Substance: FEXOFENADINE HYDROCHLORIDE
  13. ASPIRIN. [Suspect]
     Active Substance: ASPIRIN
     Indication: ATRIAL FIBRILLATION
     Dosage: CHRONIC 81 DAILY PO
     Route: 048
  14. COENZYME Q10 [Concomitant]
     Active Substance: UBIDECARENONE
  15. CYANOCOBA [Concomitant]
  16. FENUGREEK [Concomitant]
  17. VITAMIN D [Concomitant]
     Active Substance: CHOLECALCIFEROL
  18. ELIQUIS [Suspect]
     Active Substance: APIXABAN
     Indication: ATRIAL FIBRILLATION
     Dosage: CHRONIC 5 MG BID PO
     Route: 048
  19. GINSENG [Concomitant]
     Active Substance: ASIAN GINSENG
  20. VITAMIN B COMPLEX WITH C [Concomitant]
     Active Substance: ASCORBIC ACID\CALCIUM PANTOTHENATE\CYANOCOBALAMIN\NIACINAMIDE\PYRIDOXINE HYDROCHLORIDE\RIBOFLAVIN\THIAMINE MONONITRATE
  21. ALPHA LIPOIC ACID [Concomitant]
     Active Substance: .ALPHA.-LIPOIC ACID

REACTIONS (6)
  - Pulmonary oedema [None]
  - Bronchitis [None]
  - Haemorrhage [None]
  - Hypoxia [None]
  - Aspiration [None]
  - Depressed level of consciousness [None]

NARRATIVE: CASE EVENT DATE: 20150227
